FAERS Safety Report 7933400-3 (Version None)
Quarter: 2011Q4

REPORT INFORMATION
  Report Type: 
  Country: None (occurrence: None)
  Receive Date: 20111122
  Receipt Date: 20111117
  Transmission Date: 20120403
  Serious: Yes (Hospitalization)
  Sender: FDA-Public Use
  Company Number: AU-SANOFI-AVENTIS-2011SA076100

PATIENT
  Age: 59 Year
  Sex: Female
  Weight: 90 kg

DRUGS (2)
  1. ENOXAPARIN SODIUM [Suspect]
     Route: 058
  2. SUNITINIB MALATE [Suspect]
     Route: 048
     Dates: start: 20110913, end: 20111025

REACTIONS (5)
  - NAUSEA [None]
  - VOMITING [None]
  - DIARRHOEA [None]
  - MOUTH ULCERATION [None]
  - ABDOMINAL PAIN [None]
